FAERS Safety Report 16029105 (Version 1)
Quarter: 2019Q1

REPORT INFORMATION
  Report Type: Spontaneous
  Country: DE (occurrence: DE)
  Receive Date: 20190304
  Receipt Date: 20190304
  Transmission Date: 20190418
  Serious: Yes (Other)
  Sender: FDA-Public Use
  Company Number: DE-JNJFOC-20190232682

PATIENT
  Age: 66 Year
  Sex: Male

DRUGS (1)
  1. FENTANYL. [Suspect]
     Active Substance: FENTANYL
     Indication: TUMOUR PAIN
     Route: 062

REACTIONS (4)
  - Blood pressure decreased [Unknown]
  - Product administration error [Unknown]
  - Hypertension [Unknown]
  - Product prescribing error [Unknown]
